FAERS Safety Report 22259584 (Version 9)
Quarter: 2024Q2

REPORT INFORMATION
  Report Type: Spontaneous
  Country: US (occurrence: US)
  Receive Date: 20230427
  Receipt Date: 20240621
  Transmission Date: 20240715
  Serious: Yes (Other)
  Sender: FDA-Public Use
  Company Number: US-VERTEX PHARMACEUTICALS-2023-005962

PATIENT

DRUGS (3)
  1. TRIKAFTA [Suspect]
     Active Substance: ELEXACAFTOR\IVACAFTOR\TEZACAFTOR
     Indication: Cystic fibrosis
     Dosage: UNKNOWN DOSE
     Route: 048
  2. TRIKAFTA [Suspect]
     Active Substance: ELEXACAFTOR\IVACAFTOR\TEZACAFTOR
     Dosage: ALTERNATE DAYS
     Route: 048
  3. CREON [Concomitant]
     Active Substance: PANCRELIPASE AMYLASE\PANCRELIPASE LIPASE\PANCRELIPASE PROTEASE

REACTIONS (13)
  - Diarrhoea [Unknown]
  - Hepatic enzyme increased [Unknown]
  - Therapeutic embolisation [Unknown]
  - Lung transplant [Unknown]
  - Pancreatitis chronic [Recovering/Resolving]
  - Complication associated with device [Unknown]
  - Pulmonary haemorrhage [Unknown]
  - Pseudomonas infection [Unknown]
  - Liver disorder [Unknown]
  - Lung disorder [Unknown]
  - Mycobacterium avium complex infection [Not Recovered/Not Resolved]
  - Weight decreased [Unknown]
  - Acne [Unknown]
